FAERS Safety Report 17098091 (Version 1)
Quarter: 2019Q4

REPORT INFORMATION
  Report Type: Spontaneous
  Country: US (occurrence: US)
  Receive Date: 20191105
  Receipt Date: 20191105
  Transmission Date: 20200122
  Serious: Yes (Hospitalization)
  Sender: FDA-Public Use
  Company Number: None

PATIENT
  Age: 48 Year
  Sex: Female

DRUGS (2)
  1. EPCLUSA [Concomitant]
     Active Substance: SOFOSBUVIR\VELPATASVIR
  2. RIBAVIRIN TAB 200MG [Suspect]
     Active Substance: RIBAVIRIN
     Indication: CHRONIC HEPATITIS C
     Route: 048
     Dates: start: 201908, end: 201908

REACTIONS (6)
  - Hallucination [None]
  - Feeling abnormal [None]
  - Dyskinesia [None]
  - Eating disorder [None]
  - Urinary incontinence [None]
  - Nonspecific reaction [None]

NARRATIVE: CASE EVENT DATE: 20191026
